FAERS Safety Report 5579107-1 (Version None)
Quarter: 2007Q4

REPORT INFORMATION
  Report Type: 
  Country: None (occurrence: None)
  Receive Date: 20071221
  Receipt Date: 20071212
  Transmission Date: 20080405
  Serious: Yes (Other)
  Sender: FDA-Public Use
  Company Number: CHPA2007US13643

PATIENT
  Age: 29 Year
  Sex: Female

DRUGS (1)
  1. 4 WAY FAST ACTING NASAL SPRAY (NCH)(PHENYEPHRINE) NASAL SPRAY [Suspect]
     Dosage: 10 TO 15 TIMES QD, NASAL
     Route: 045

REACTIONS (3)
  - DRUG DEPENDENCE [None]
  - DYSPNOEA [None]
  - INTENTIONAL DRUG MISUSE [None]
